FAERS Safety Report 23703971 (Version 2)
Quarter: 2024Q2

REPORT INFORMATION
  Report Type: Spontaneous
  Country: US (occurrence: None)
  Receive Date: 20240403
  Receipt Date: 20240420
  Transmission Date: 20240716
  Serious: No
  Sender: FDA-Public Use
  Company Number: 2024A066343

PATIENT
  Age: 19349 Day
  Sex: Female

DRUGS (1)
  1. BUDESONIDE\FORMOTEROL [Suspect]
     Active Substance: BUDESONIDE\FORMOTEROL
     Dosage: 160 UG, EVERY 12 HOURS
     Route: 055
     Dates: start: 20240311

REACTIONS (12)
  - Illness [Unknown]
  - Vision blurred [Unknown]
  - Memory impairment [Unknown]
  - Oropharyngeal pain [Unknown]
  - Cough [Unknown]
  - Dysphonia [Unknown]
  - Product use in unapproved indication [Unknown]
  - Wrong technique in device usage process [Unknown]
  - Device malfunction [Unknown]
  - Device delivery system issue [Unknown]
  - Wrong technique in product usage process [Unknown]
  - Incorrect dose administered by device [Unknown]

NARRATIVE: CASE EVENT DATE: 20240317
